FAERS Safety Report 6054863-7 (Version None)
Quarter: 2009Q1

REPORT INFORMATION
  Report Type: 
  Country: None (occurrence: None)
  Receive Date: 20090128
  Receipt Date: 20090119
  Transmission Date: 20090719
  Serious: Yes (Other)
  Sender: FDA-Public Use
  Company Number: JP-PFIZER INC-2008033458

PATIENT

DRUGS (3)
  1. XALATAN [Suspect]
     Route: 031
  2. UNOPROSTONE ISOPROPYL [Concomitant]
     Route: 031
  3. TARIVID OPHTHALMIC [Concomitant]
     Route: 031

REACTIONS (6)
  - BRONCHITIS [None]
  - CORNEAL DISORDER [None]
  - DYSGEUSIA [None]
  - EYELID EROSION [None]
  - PAROSMIA [None]
  - PRODUCTIVE COUGH [None]
